FAERS Safety Report 11673722 (Version 1)
Quarter: 2015Q4

REPORT INFORMATION
  Report Type: Other
  Country: HR (occurrence: HR)
  Receive Date: 20151028
  Receipt Date: 20151028
  Transmission Date: 20160304
  Serious: Yes (Other)
  Sender: FDA-Public Use
  Company Number: HR-ASTELLAS-2015US038922

PATIENT
  Age: 70 Year
  Sex: Male
  Weight: 150 kg

DRUGS (5)
  1. ATACAND PLUS [Concomitant]
     Active Substance: CANDESARTAN CILEXETIL\HYDROCHLOROTHIAZIDE
     Indication: HYPERTENSION
     Dosage: 1 DF (12.5 MG HYDROCHLOROTHIAZIDE + 16 MG CANDESARTAN CILEXETIL), ONCE DAILY
     Route: 048
     Dates: start: 20130204
  2. ROSIX                              /01588602/ [Concomitant]
     Indication: CORONARY ARTERY DISEASE
     Dosage: UNK, UNKNOWN FREQ.
     Route: 048
     Dates: start: 20130204
  3. BETMIGA [Suspect]
     Active Substance: MIRABEGRON
     Indication: PROSTATIC ADENOMA
     Route: 048
     Dates: start: 20150923, end: 20151012
  4. ALOPURINOL [Concomitant]
     Active Substance: ALLOPURINOL
     Indication: GOUT
     Dosage: UNK, UNKNOWN FREQ.
     Route: 048
     Dates: start: 20110707
  5. ANDOL [Concomitant]
     Active Substance: ASPIRIN
     Indication: CORONARY ARTERY DISEASE
     Dosage: UNK, UNKNOWN FREQ.
     Route: 048
     Dates: start: 20141009

REACTIONS (1)
  - Ventricular extrasystoles [Recovering/Resolving]

NARRATIVE: CASE EVENT DATE: 20150926
